FAERS Safety Report 8565627 (Version 2)
Quarter: 2012Q4

REPORT INFORMATION
  Report Type: 
  Country: FR (occurrence: FR)
  Receive Date: 20120516
  Receipt Date: 20121108
  Transmission Date: 20130627
  Serious: Yes (Death, Hospitalization)
  Sender: FDA-Public Use
  Company Number: FR-GLAXOSMITHKLINE-B0801059A

PATIENT
  Age: 72 None
  Sex: Male
  Weight: 88 kg

DRUGS (8)
  1. ARIXTRA [Suspect]
     Indication: DEEP VEIN THROMBOSIS
     Dosage: 2.5MG Per day
     Route: 058
     Dates: end: 20120510
  2. NOVOMIX [Concomitant]
     Indication: TYPE 1 DIABETES MELLITUS
     Dosage: 30UNIT See dosage text
     Route: 058
     Dates: end: 20120511
  3. AMAREL [Concomitant]
     Indication: HYPERTENSION
     Dosage: .5MG Per day
     Route: 048
     Dates: end: 20120511
  4. BACLOFEN [Concomitant]
     Indication: HEMIPLEGIA
     Dosage: 10MG Three times per day
     Route: 048
     Dates: end: 20120511
  5. SPECIAFOLDINE [Concomitant]
     Indication: PRODUCT USED FOR UNKNOWN INDICATION
     Dosage: 5MG Twice per day
     Route: 048
     Dates: end: 20120511
  6. DAFALGAN [Concomitant]
     Indication: PAIN
     Dosage: 1000MG Three times per day
     Route: 048
     Dates: end: 20120511
  7. TOCO 500 [Concomitant]
     Dosage: 500MG Three times per day
     Route: 048
     Dates: end: 20120511
  8. COVERSYL [Concomitant]
     Indication: HYPERTENSION
     Dosage: 5MG Per day
     Dates: end: 20120511

REACTIONS (6)
  - Cerebral haematoma [Not Recovered/Not Resolved]
  - Coma [Fatal]
  - Haemorrhagic stroke [Fatal]
  - Malaise [Unknown]
  - Convulsion [Unknown]
  - Off label use [Unknown]
